FAERS Safety Report 4277651-0 (Version None)
Quarter: 2004Q1

REPORT INFORMATION
  Report Type: 
  Country: None (occurrence: None)
  Receive Date: 20040121
  Receipt Date: 20040114
  Transmission Date: 20041129
  Serious: Yes (Death)
  Sender: FDA-Public Use
  Company Number: US-JNJFOC-20031001058

PATIENT
  Age: 53 Year
  Sex: Male
  Weight: 69.8539 kg

DRUGS (13)
  1. DURAGESIC [Suspect]
     Indication: PAIN
     Dosage: 75 UG/HR, 1 IN 72 HOUR, TRANSDERMAL
     Route: 062
  2. VALIUM [Concomitant]
  3. NEURONTIN [Concomitant]
  4. ROXICET [Concomitant]
  5. ALBUTEROL [Concomitant]
  6. DURATUSS (RESPAIRE-SR-120) [Concomitant]
  7. PAXIL [Concomitant]
  8. ZANTAC [Concomitant]
  9. LASIX [Concomitant]
  10. K-DUR 10 [Concomitant]
  11. FLOMAX [Concomitant]
  12. DUONEB (MEDIHALER-DUO) [Concomitant]
  13. COMBIVENT [Concomitant]

REACTIONS (1)
  - DEATH [None]
